FAERS Safety Report 21453463 (Version 4)
Quarter: 2022Q4

REPORT INFORMATION
  Report Type: Report from Study
  Country: US (occurrence: US)
  Receive Date: 20221013
  Receipt Date: 20221230
  Transmission Date: 20230112
  Serious: Yes (Hospitalization, Other)
  Sender: FDA-Public Use
  Company Number: US-ABBVIE-4153782

PATIENT
  Age: 63 Year
  Sex: Female
  Weight: 58.059 kg

DRUGS (14)
  1. HUMIRA [Suspect]
     Active Substance: ADALIMUMAB
     Indication: Rheumatoid arthritis
     Route: 058
  2. CELECOXIB [Concomitant]
     Active Substance: CELECOXIB
     Indication: Rheumatoid arthritis
     Dosage: 200 MILLIGRAM
     Route: 048
  3. Moderna [Concomitant]
     Indication: COVID-19 immunisation
     Dosage: 1 IN ONCE (1ST DOSE)
     Route: 030
     Dates: start: 20210319, end: 20210319
  4. Moderna [Concomitant]
     Indication: COVID-19 immunisation
     Dosage: 1 IN ONCE (2ND DOSE)
     Route: 030
     Dates: start: 20210416, end: 20210416
  5. Moderna [Concomitant]
     Indication: COVID-19 immunisation
     Dosage: 1 IN ONCE  (BOOSTER DOSE)
     Route: 030
     Dates: start: 20211031, end: 20211031
  6. Moderna [Concomitant]
     Indication: COVID-19 immunisation
     Dosage: 1 IN ONCE  (2 BOOSTER DOSE)
     Route: 030
     Dates: start: 202209
  7. ASPIRIN [Concomitant]
     Active Substance: ASPIRIN
     Indication: Blood pressure decreased
     Dosage: 81 MILLIGRAM
  8. FISH OIL [Concomitant]
     Active Substance: FISH OIL
     Indication: Supplementation therapy
     Dosage: 1000 MILLIGRAM
  9. LYSINE [Concomitant]
     Active Substance: LYSINE
     Indication: Supplementation therapy
  10. METHOTREXATE [Concomitant]
     Active Substance: METHOTREXATE
     Indication: Rheumatoid arthritis
  11. VITAMIN C [Concomitant]
     Active Substance: ASCORBIC ACID
     Indication: Supplementation therapy
  12. VITAMIN D [Concomitant]
     Active Substance: VITAMIN D NOS
     Indication: Supplementation therapy
     Dosage: 5000 IU (INTERNATIONAL UNIT)
  13. FOLIC ACID [Concomitant]
     Active Substance: FOLIC ACID
     Indication: Rheumatoid arthritis
  14. IRON [Concomitant]
     Active Substance: IRON
     Indication: Supplementation therapy
     Route: 048

REACTIONS (5)
  - Mitral valve repair [Recovering/Resolving]
  - Blood pressure decreased [Recovering/Resolving]
  - Blood pressure abnormal [Unknown]
  - Heart rate increased [Recovering/Resolving]
  - Spinal operation [Unknown]

NARRATIVE: CASE EVENT DATE: 20220720
